APPROVED DRUG PRODUCT: GATIFLOXACIN
Active Ingredient: GATIFLOXACIN
Strength: 0.5%
Dosage Form/Route: SOLUTION/DROPS;OPHTHALMIC
Application: A202653 | Product #001
Applicant: LUPIN LTD
Approved: Aug 28, 2013 | RLD: No | RS: No | Type: DISCN